FAERS Safety Report 17052815 (Version 2)
Quarter: 2019Q4

REPORT INFORMATION
  Report Type: Spontaneous
  Country: US (occurrence: US)
  Receive Date: 20191120
  Receipt Date: 20191122
  Transmission Date: 20200122
  Serious: No
  Sender: FDA-Public Use
  Company Number: US-BRISTOL-MYERS SQUIBB COMPANY-BMS-2019-110557

PATIENT
  Age: 69 Year
  Sex: Male

DRUGS (1)
  1. ELIQUIS [Suspect]
     Active Substance: APIXABAN
     Indication: CEREBROVASCULAR ACCIDENT PROPHYLAXIS
     Dosage: 5 MILLIGRAM, BID (ONE IN THE MORNING AND ONE AT NIGHT)
     Route: 048
     Dates: start: 2019

REACTIONS (3)
  - Drug ineffective [Unknown]
  - Heart rate increased [Unknown]
  - Vision blurred [Unknown]

NARRATIVE: CASE EVENT DATE: 201910
